FAERS Safety Report 25158360 (Version 1)
Quarter: 2025Q2

REPORT INFORMATION
  Report Type: Spontaneous
  Country: US (occurrence: US)
  Receive Date: 20250404
  Receipt Date: 20250404
  Transmission Date: 20250717
  Serious: No
  Sender: ROCHE
  Company Number: US-ROCHE-10000243367

PATIENT
  Sex: Female

DRUGS (3)
  1. XOLAIR [Suspect]
     Active Substance: OMALIZUMAB
     Indication: Asthma
     Dosage: STRENGTH: 150MG/ML
     Route: 058
     Dates: start: 202409
  2. XOLAIR [Suspect]
     Active Substance: OMALIZUMAB
     Dosage: STRENGTH: 75MG/0.5ML
     Route: 058
     Dates: start: 202409
  3. XOLAIR PFS [Concomitant]
     Active Substance: OMALIZUMAB

REACTIONS (4)
  - Device difficult to use [Unknown]
  - Accidental underdose [Unknown]
  - Product dose omission issue [Unknown]
  - No adverse event [Unknown]
